FAERS Safety Report 15661537 (Version 1)
Quarter: 2018Q4

REPORT INFORMATION
  Report Type: Spontaneous
  Country: US (occurrence: US)
  Receive Date: 20181127
  Receipt Date: 20181127
  Transmission Date: 20190205
  Serious: Yes (Other)
  Sender: FDA-Public Use
  Company Number: US-MYLANLABS-2018M1087516

PATIENT

DRUGS (4)
  1. CITALOPRAM [Suspect]
     Active Substance: CITALOPRAM HYDROBROMIDE
     Dosage: 20 MILLIGRAM, ABOUT 3 WEEKS AGO
  2. CITALOPRAM [Suspect]
     Active Substance: CITALOPRAM HYDROBROMIDE
     Indication: DEPRESSION
     Dosage: 20 MILLIGRAM
     Dates: start: 1983
  3. CITALOPRAM AUROBINDO PHARMA [Suspect]
     Active Substance: CITALOPRAM HYDROBROMIDE
     Indication: DEPRESSION
     Dosage: UNK
     Dates: start: 201806
  4. CITALOPRAM [Suspect]
     Active Substance: CITALOPRAM HYDROBROMIDE
     Dosage: 20 MILLIGRAM, RECENT FILL WAS 26SEPT2018

REACTIONS (9)
  - Irritability [Unknown]
  - Drug ineffective [Unknown]
  - Mood altered [Unknown]
  - Insomnia [Unknown]
  - Product substitution issue [Unknown]
  - Suicidal ideation [Unknown]
  - Condition aggravated [Unknown]
  - Self-injurious ideation [Unknown]
  - Agitation [Unknown]
